FAERS Safety Report 9072374 (Version 2)
Quarter: 2013Q1

REPORT INFORMATION
  Report Type: Report from Study
  Country: SE (occurrence: SE)
  Receive Date: 20130129
  Receipt Date: 20130309
  Transmission Date: 20140127
  Serious: Yes (Hospitalization)
  Sender: FDA-Public Use
  Company Number: SE-US-EMD SERONO, INC.-7189762

PATIENT
  Age: 65 Year
  Sex: Female

DRUGS (1)
  1. REBIF [Suspect]
     Indication: RELAPSING-REMITTING MULTIPLE SCLEROSIS
     Route: 058
     Dates: start: 200106

REACTIONS (3)
  - Accidental overdose [Recovered/Resolved]
  - Device issue [Unknown]
  - No adverse event [Unknown]
